FAERS Safety Report 13089696 (Version 1)
Quarter: 2017Q1

REPORT INFORMATION
  Report Type: Spontaneous
  Country: US (occurrence: US)
  Receive Date: 20170103
  Receipt Date: 20170103
  Transmission Date: 20170428
  Serious: No
  Sender: FDA-Public Use
  Company Number: None

PATIENT
  Age: 67 Year
  Sex: Male
  Weight: 80.1 kg

DRUGS (1)
  1. HEPARIN [Suspect]
     Active Substance: HEPARIN SODIUM
     Indication: CARDIAC OPERATION
     Dosage: 7000 UNITS ONCE IV
     Route: 042
     Dates: start: 20161220, end: 20161220

REACTIONS (2)
  - Coronary artery thrombosis [None]
  - Angina pectoris [None]

NARRATIVE: CASE EVENT DATE: 20161220
